FAERS Safety Report 4778580-6 (Version None)
Quarter: 2005Q3

REPORT INFORMATION
  Report Type: 
  Country: None (occurrence: None)
  Receive Date: 20050926
  Receipt Date: 20050802
  Transmission Date: 20060218
  Serious: Yes (Hospitalization)
  Sender: FDA-Public Use
  Company Number: US-MERCK-0508USA00978

PATIENT
  Age: 53 Year
  Sex: Male
  Weight: 166 kg

DRUGS (2)
  1. VIOXX [Suspect]
     Indication: ARTHRITIS
     Route: 048
     Dates: start: 20010401, end: 20030805
  2. VIOXX [Suspect]
     Route: 048
     Dates: start: 20010401, end: 20030805

REACTIONS (4)
  - CATARACT [None]
  - CATARACT OPERATION [None]
  - CEREBROVASCULAR ACCIDENT [None]
  - THROMBOSIS [None]
